FAERS Safety Report 5630721-4 (Version None)
Quarter: 2008Q1

REPORT INFORMATION
  Report Type: 
  Country: None (occurrence: None)
  Receive Date: 20080212
  Receipt Date: 20080204
  Transmission Date: 20080703
  Serious: Yes (Death)
  Sender: FDA-Public Use
  Company Number: 2008-00922

PATIENT
  Age: 26 Year
  Sex: Male

DRUGS (7)
  1. IBUPROFEN [Suspect]
  2. ZOLPIDEM TARTRATE                             (ZOLPIDEM TARTRATE) TABL [Suspect]
  3. ALPRAZOLAM                                     (ALPRAZOLAM) TABLET, 0. [Suspect]
  4. LAMOTRIGINE [Suspect]
  5. ESCITALOPRAM OXALATE [Suspect]
  6. PYRAZOLOPYRIMIDINE [Suspect]
  7. RAMELTEON [Suspect]

REACTIONS (1)
  - DEATH [None]
